FAERS Safety Report 5277537-9 (Version None)
Quarter: 2007Q1

REPORT INFORMATION
  Report Type: 
  Country: None (occurrence: None)
  Receive Date: 20070327
  Receipt Date: 20070323
  Transmission Date: 20070707
  Serious: Yes (Other)
  Sender: FDA-Public Use
  Company Number: US-BRISTOL-MYERS SQUIBB COMPANY-13725759

PATIENT
  Age: 42 Year
  Sex: Male

DRUGS (1)
  1. DEFINITY [Suspect]
     Indication: ECHOCARDIOGRAM
     Route: 040
     Dates: start: 20070321

REACTIONS (6)
  - BACK PAIN [None]
  - DIPLEGIA [None]
  - FLUSHING [None]
  - HYPERHIDROSIS [None]
  - MYDRIASIS [None]
  - SKIN WARM [None]
